FAERS Safety Report 9537801 (Version 2)
Quarter: 2013Q3

REPORT INFORMATION
  Report Type: Spontaneous
  Country: US (occurrence: US)
  Receive Date: 20130919
  Receipt Date: 20130919
  Transmission Date: 20140515
  Serious: Yes (Hospitalization)
  Sender: FDA-Public Use
  Company Number: US-BAXTER-2013BAX034890

PATIENT
  Sex: Male
  Weight: 44.5 kg

DRUGS (1)
  1. RECOMBINATE [Suspect]
     Indication: HAEMOPHILIA
     Route: 065

REACTIONS (1)
  - Vascular rupture [Recovering/Resolving]
